FAERS Safety Report 12171038 (Version 1)
Quarter: 2016Q1

REPORT INFORMATION
  Report Type: Spontaneous
  Country: US (occurrence: US)
  Receive Date: 20160311
  Receipt Date: 20160311
  Transmission Date: 20160526
  Serious: No
  Sender: FDA-Public Use
  Company Number: PHEH2016US005791

PATIENT
  Age: 56 Year
  Sex: Female

DRUGS (1)
  1. ILARIS [Suspect]
     Active Substance: CANAKINUMAB
     Indication: IMMUNODEFICIENCY COMMON VARIABLE
     Dosage: 1 DF, ONCE/SINGLE
     Route: 058

REACTIONS (2)
  - Product use issue [Unknown]
  - Pyrexia [Recovered/Resolved]
